FAERS Safety Report 18421935 (Version 7)
Quarter: 2022Q4

REPORT INFORMATION
  Report Type: Spontaneous
  Country: US (occurrence: US)
  Receive Date: 20201023
  Receipt Date: 20221014
  Transmission Date: 20230112
  Serious: Yes (Death)
  Sender: FDA-Public Use
  Company Number: US-PFIZER INC-2020409734

PATIENT
  Age: 90 Year
  Sex: Female

DRUGS (4)
  1. IBRANCE [Suspect]
     Active Substance: PALBOCICLIB
     Indication: Breast cancer female
     Dosage: 100 MG
     Dates: start: 202010, end: 202012
  2. IBRANCE [Suspect]
     Active Substance: PALBOCICLIB
     Dosage: 75 MG
  3. IBRANCE [Suspect]
     Active Substance: PALBOCICLIB
     Dosage: 75 MG
     Dates: start: 20201101
  4. IBRANCE [Suspect]
     Active Substance: PALBOCICLIB
     Dosage: 75 MG
     Dates: start: 20201117, end: 20221011

REACTIONS (11)
  - Second primary malignancy [Fatal]
  - Leukaemia [Fatal]
  - Fatigue [Recovering/Resolving]
  - Platelet count decreased [Not Recovered/Not Resolved]
  - Neutrophil count decreased [Not Recovered/Not Resolved]
  - Epistaxis [Recovered/Resolved]
  - Sinus congestion [Recovering/Resolving]
  - White blood cell count decreased [Not Recovered/Not Resolved]
  - Alopecia [Recovering/Resolving]
  - Decreased appetite [Recovering/Resolving]
  - Fungal infection [Not Recovered/Not Resolved]
